FAERS Safety Report 23525951 (Version 2)
Quarter: 2024Q1

REPORT INFORMATION
  Report Type: Spontaneous
  Country: FR (occurrence: FR)
  Receive Date: 20240215
  Receipt Date: 20240325
  Transmission Date: 20240409
  Serious: Yes (Hospitalization, Other)
  Sender: FDA-Public Use
  Company Number: None

PATIENT
  Age: 66 Year
  Sex: Male

DRUGS (3)
  1. OPDIVO [Suspect]
     Active Substance: NIVOLUMAB
     Indication: Superficial spreading melanoma stage unspecified
     Route: 042
     Dates: start: 20231122, end: 20231122
  2. ORENCIA [Suspect]
     Active Substance: ABATACEPT
     Indication: Autoimmune myocarditis
     Route: 042
     Dates: start: 20231221, end: 20240117
  3. RUXOLITINIB [Suspect]
     Active Substance: RUXOLITINIB
     Indication: Autoimmune myocarditis
     Route: 048
     Dates: start: 20231221, end: 20240121

REACTIONS (2)
  - Pulmonary embolism [Recovering/Resolving]
  - Off label use [Unknown]

NARRATIVE: CASE EVENT DATE: 20240109
